FAERS Safety Report 10495223 (Version 1)
Quarter: 2014Q3

REPORT INFORMATION
  Report Type: Spontaneous
  Country: US (occurrence: None)
  Receive Date: 20140815
  Receipt Date: 20140815
  Transmission Date: 20150326
  Serious: Yes (Life-Threatening, Hospitalization, Other)
  Sender: FDA-Public Use
  Company Number: ADR-2014-00621

PATIENT
  Age: 13 Year
  Sex: Male

DRUGS (1)
  1. LIORESAL [Suspect]
     Active Substance: BACLOFEN
     Indication: MUSCLE SPASTICITY
     Dosage: SEE B5
     Dates: end: 20140129

REACTIONS (11)
  - Implant site swelling [None]
  - Unresponsive to stimuli [None]
  - Hypotension [None]
  - Overdose [None]
  - Respiratory depression [None]
  - Drug withdrawal syndrome [None]
  - Implant site extravasation [None]
  - Incorrect route of drug administration [None]
  - Lethargy [None]
  - Heart rate decreased [None]
  - Respiratory rate decreased [None]

NARRATIVE: CASE EVENT DATE: 20140126
